FAERS Safety Report 4285902-1 (Version None)
Quarter: 2004Q1

REPORT INFORMATION
  Report Type: 
  Country: None (occurrence: None)
  Receive Date: 20040203
  Receipt Date: 20040123
  Transmission Date: 20041129
  Serious: Yes (Death)
  Sender: FDA-Public Use
  Company Number: R300945-PAP-USA

PATIENT
  Age: 77 Year
  Sex: Female

DRUGS (1)
  1. ACIPHEX [Suspect]
     Dosage: UNKNOWN, UNKNOWN; ORAL
     Route: 048

REACTIONS (1)
  - DEATH [None]
